FAERS Safety Report 7632472-3 (Version None)
Quarter: 2011Q3

REPORT INFORMATION
  Report Type: 
  Country: None (occurrence: None)
  Receive Date: 20110725
  Receipt Date: 20100917
  Transmission Date: 20111222
  Serious: No
  Sender: FDA-Public Use
  Company Number: US-BRISTOL-MYERS SQUIBB COMPANY-15291230

PATIENT
  Age: 72 Year
  Sex: Male
  Weight: 66 kg

DRUGS (6)
  1. VERAPAMIL [Concomitant]
  2. DIOVAN [Concomitant]
  3. PRAZOSIN HCL [Concomitant]
  4. WARFARIN SODIUM [Suspect]
     Indication: CARDIAC OPERATION
     Dates: start: 20090201
  5. LOVASTATIN [Concomitant]
  6. ISOSORBIDE DINITRATE [Concomitant]

REACTIONS (2)
  - WEIGHT DECREASED [None]
  - PAIN [None]
